FAERS Safety Report 9092438 (Version 7)
Quarter: 2013Q3

REPORT INFORMATION
  Report Type: Spontaneous
  Country: FR (occurrence: FR)
  Receive Date: 20130201
  Receipt Date: 20130911
  Transmission Date: 20140515
  Serious: Yes (Hospitalization, Other)
  Sender: FDA-Public Use
  Company Number: FR-VERTEX PHARMACEUTICALS INC.-2013-001419

PATIENT
  Age: 70 Year
  Sex: Female
  Weight: 84 kg

DRUGS (15)
  1. INCIVO [Suspect]
     Indication: HEPATITIS C
     Dosage: UNK, QD
     Route: 048
     Dates: start: 20121024, end: 20130109
  2. PEGASYS [Suspect]
     Indication: HEPATITIS C
     Dosage: DOSAGE FORM: SOLUTION FOR INJECTION
     Route: 058
     Dates: start: 20121024, end: 20121113
  3. PEGASYS [Suspect]
     Dosage: DOSAGE FORM: SOLUTION FOR INJECTION
     Route: 058
     Dates: start: 20121114
  4. NEORECORMON [Suspect]
     Indication: APLASTIC ANAEMIA
     Dosage: DOSAGE FORM: INJECTION
     Route: 058
     Dates: start: 201211, end: 20121218
  5. NEORECORMON [Suspect]
     Dosage: DOSAGE FORM: INJECTION
     Route: 058
     Dates: start: 20121219, end: 20130130
  6. REBETOL [Suspect]
     Indication: HEPATITIS C
     Dosage: DOSAGE FORM: TABLET, 1 TABLET A DAY (1-0-0) OF 200 MG
     Route: 048
     Dates: start: 20130109
  7. REBETOL [Suspect]
     Dosage: DOSAGE FORM: TABLET
     Route: 048
     Dates: start: 20121121, end: 20130108
  8. REBETOL [Suspect]
     Dosage: DOSAGE FORM: TABLET
     Route: 048
     Dates: start: 20121024, end: 20121113
  9. REBETOL [Suspect]
     Dosage: DOSAGE FORM: TABLET
     Route: 048
     Dates: start: 20121114, end: 20121120
  10. ALDACTAZINE [Concomitant]
     Indication: PRODUCT USED FOR UNKNOWN INDICATION
     Dosage: DOSAGE FORM: UNSPECIFIED
  11. LYRICA [Concomitant]
     Indication: NEUROPATHY PERIPHERAL
     Dosage: 10 UNK, UNK
  12. LYRICA [Concomitant]
     Indication: HERPES ZOSTER
  13. ALDACTONE [Concomitant]
     Indication: HYPERTENSION
     Dosage: 50 MG, UNK
     Route: 048
  14. LEVOTHYROX [Concomitant]
     Indication: PRODUCT USED FOR UNKNOWN INDICATION
     Dosage: 62 ?G, QD
     Route: 048
  15. LEVOTHYROX [Concomitant]
     Indication: HYPOTHYROIDISM

REACTIONS (9)
  - Gastroenteritis [Unknown]
  - Creatinine renal clearance decreased [Unknown]
  - Renal failure acute [Unknown]
  - Aplastic anaemia [Recovered/Resolved]
  - Pancytopenia [Unknown]
  - Thrombocytopenia [Recovered/Resolved]
  - Rash [Unknown]
  - Diarrhoea [Recovered/Resolved]
  - Anaemia [Recovered/Resolved]
